FAERS Safety Report 24887070 (Version 1)
Quarter: 2025Q1

REPORT INFORMATION
  Report Type: Report from Study
  Country: US (occurrence: US)
  Receive Date: 20250127
  Receipt Date: 20250127
  Transmission Date: 20250408
  Serious: Yes (Other)
  Sender: ABBVIE
  Company Number: US-ABBVIE-6095412

PATIENT
  Age: 61 Year
  Sex: Female

DRUGS (1)
  1. SKYRIZI [Suspect]
     Active Substance: RISANKIZUMAB-RZAA
     Indication: Psoriasis
     Route: 058
     Dates: start: 20201124

REACTIONS (3)
  - Myocardial infarction [Recovering/Resolving]
  - Arteriosclerosis coronary artery [Unknown]
  - Coronary artery thrombosis [Unknown]

NARRATIVE: CASE EVENT DATE: 20250112
